FAERS Safety Report 14762143 (Version 3)
Quarter: 2018Q2

REPORT INFORMATION
  Report Type: Spontaneous
  Country: US (occurrence: US)
  Receive Date: 20180416
  Receipt Date: 20180430
  Transmission Date: 20180711
  Serious: Yes (Life-Threatening, Hospitalization, Other)
  Sender: FDA-Public Use
  Company Number: US-009507513-1804USA005144

PATIENT
  Age: 41 Year
  Sex: Male

DRUGS (1)
  1. ZERBAXA [Suspect]
     Active Substance: CEFTOLOZANE SULFATE\TAZOBACTAM SODIUM
     Indication: PSEUDOMONAL BACTERAEMIA
     Dosage: UNK
     Route: 042
     Dates: start: 20180406

REACTIONS (3)
  - Bacteraemia [Not Recovered/Not Resolved]
  - Vascular access malfunction [Not Recovered/Not Resolved]
  - Body mass index increased [Not Recovered/Not Resolved]

NARRATIVE: CASE EVENT DATE: 20180410
